FAERS Safety Report 6506142-9 (Version None)
Quarter: 2009Q4

REPORT INFORMATION
  Report Type: 
  Country: None (occurrence: None)
  Receive Date: 20091218
  Receipt Date: 20091208
  Transmission Date: 20100525
  Serious: Yes (Other)
  Sender: FDA-Public Use
  Company Number: ES-NAPPMUNDI-DEU-2009-0005757

PATIENT
  Sex: Female

DRUGS (6)
  1. OXY CR TAB [Suspect]
     Indication: ARTHRALGIA
     Dosage: 20 MG, UNK
     Route: 048
     Dates: start: 20091111, end: 20091130
  2. OLMESARTAN [Concomitant]
  3. HIDROCLOROTIAZIDA [Concomitant]
  4. BISOPROLOL FUMARATE [Concomitant]
  5. DOXAZOSIN MESYLATE [Concomitant]
  6. AMLODIPINE [Concomitant]

REACTIONS (1)
  - HYPERTENSIVE CRISIS [None]
